FAERS Safety Report 24622744 (Version 1)
Quarter: 2024Q4

REPORT INFORMATION
  Report Type: Spontaneous
  Country: FR (occurrence: FR)
  Receive Date: 20241115
  Receipt Date: 20241115
  Transmission Date: 20250115
  Serious: Yes (Hospitalization)
  Sender: AUROBINDO
  Company Number: FR-AFSSAPS-PC2024000857

PATIENT
  Age: 33 Year
  Sex: Male
  Weight: 80 kg

DRUGS (4)
  1. AMOXICILLIN [Suspect]
     Active Substance: AMOXICILLIN
     Indication: Otitis media acute
     Dosage: UNK
     Route: 065
     Dates: start: 20201128
  2. CLAVULANIC ACID [Suspect]
     Active Substance: CLAVULANIC ACID
     Indication: Otitis media acute
     Dosage: UNK
     Route: 065
     Dates: start: 20201128
  3. OPDIVO [Suspect]
     Active Substance: NIVOLUMAB
     Indication: Pituitary tumour benign
     Dosage: 230 MILLIGRAM, CYCLICAL
     Route: 065
     Dates: start: 20201022
  4. YERVOY [Suspect]
     Active Substance: IPILIMUMAB
     Indication: Pituitary tumour benign
     Dosage: 77.5 MILLIGRAM
     Route: 065
     Dates: start: 20201022

REACTIONS (1)
  - Rash morbilliform [Recovered/Resolved]

NARRATIVE: CASE EVENT DATE: 20201206
